FAERS Safety Report 13792388 (Version 2)
Quarter: 2020Q1

REPORT INFORMATION
  Report Type: Report from Study
  Country: US (occurrence: US)
  Receive Date: 20170725
  Receipt Date: 20200330
  Transmission Date: 20200409
  Serious: Yes (Other)
  Sender: FDA-Public Use
  Company Number: US-JAZZ-2016-US-023082

PATIENT
  Sex: Female
  Weight: 95.24 kg

DRUGS (16)
  1. XYREM [Suspect]
     Active Substance: SODIUM OXYBATE
     Indication: CATAPLEXY
     Dosage: DOSE ADJUSTMENT
     Route: 048
     Dates: start: 2011, end: 2012
  2. PROVERA [Concomitant]
     Active Substance: MEDROXYPROGESTERONE ACETATE
  3. MAGNESIUM GLUCONATE [Concomitant]
     Active Substance: MAGNESIUM GLUCONATE
  4. PHENTERMINE. [Concomitant]
     Active Substance: PHENTERMINE
  5. MECLIZINE [Concomitant]
     Active Substance: MECLIZINE HYDROCHLORIDE
  6. NUVARING [Concomitant]
     Active Substance: ETHINYL ESTRADIOL\ETONOGESTREL
  7. ZINC CHELATE [ZINC GLUCONATE] [Concomitant]
  8. XYREM [Suspect]
     Active Substance: SODIUM OXYBATE
     Indication: NARCOLEPSY
     Dosage: 3 G, BID
     Route: 048
     Dates: start: 201110, end: 2011
  9. RITALIN [Concomitant]
     Active Substance: METHYLPHENIDATE HYDROCHLORIDE
  10. PRENATAL VITAMINS [MINERALS NOS;VITAMINS NOS] [Concomitant]
     Active Substance: MINERALS\VITAMINS
  11. XYREM [Suspect]
     Active Substance: SODIUM OXYBATE
     Dosage: 4.5 G, BID
     Route: 048
     Dates: start: 201209
  12. NUVIGIL [Concomitant]
     Active Substance: ARMODAFINIL
  13. BIOTIN [Concomitant]
     Active Substance: BIOTIN
  14. NALTREXONE HCL [Concomitant]
     Active Substance: NALTREXONE HYDROCHLORIDE
  15. XANAX [Concomitant]
     Active Substance: ALPRAZOLAM
  16. CALCIUM + VIT D [Concomitant]
     Active Substance: CALCIUM\VITAMIN D

REACTIONS (5)
  - Exposure during pregnancy [Unknown]
  - Blood pressure increased [Recovering/Resolving]
  - Haematoma [Recovering/Resolving]
  - Pain [Unknown]
  - Haemorrhage [Unknown]
